FAERS Safety Report 5025844-7 (Version None)
Quarter: 2006Q2

REPORT INFORMATION
  Report Type: 
  Country: None (occurrence: None)
  Receive Date: 20060608
  Receipt Date: 20060522
  Transmission Date: 20061013
  Serious: Yes (Life-Threatening, Hospitalization)
  Sender: FDA-Public Use
  Company Number: 225920

PATIENT
  Age: 55 Year

DRUGS (5)
  1. AVASTIN [Suspect]
     Indication: BREAST CANCER
     Dosage: 10 MG/KG, Q2W, INTRAVENOUS
     Route: 042
     Dates: start: 20060306
  2. DOXORUBICIN HCL [Suspect]
     Indication: BREAST CANCER
     Dosage: 60 MG/M2, Q2W, IV BOLUS
     Route: 040
     Dates: start: 20060306
  3. CYCLOPHOSPHAMIDE [Suspect]
     Indication: BREAST CANCER
     Dosage: 600 MG/M2, Q2W, INTRAVENOUS
     Route: 042
     Dates: start: 20060306
  4. FILGRASTIM (FILGASTIM) [Suspect]
     Indication: BREAST CANCER
     Dosage: Q2W, SUBCUTANEOUS
     Route: 058
     Dates: start: 20060306
  5. LIPIDS WITH TPN (HYPERALIMENTATION, INTRAVENOUS FATE EMULSON [Concomitant]

REACTIONS (5)
  - BLOOD PRESSURE DECREASED [None]
  - LEUKOPENIA [None]
  - PLATELET COUNT DECREASED [None]
  - PNEUMONIA [None]
  - RESPIRATORY FAILURE [None]
